FAERS Safety Report 12854457 (Version 3)
Quarter: 2016Q4

REPORT INFORMATION
  Report Type: Spontaneous
  Country: US (occurrence: US)
  Receive Date: 20161017
  Receipt Date: 20161017
  Transmission Date: 20170207
  Serious: Yes (Other)
  Sender: FDA-Public Use
  Company Number: ALCN2016US006851

PATIENT
  Age: 6 Week

DRUGS (3)
  1. TRIESENCE [Suspect]
     Active Substance: TRIAMCINOLONE ACETONIDE
     Indication: POSTOPERATIVE CARE
     Dosage: 0.05 ML, ONCE/SINGLE
     Route: 065
  2. TIMOLOL. [Suspect]
     Active Substance: TIMOLOL
     Indication: PRODUCT USED FOR UNKNOWN INDICATION
     Dosage: UNK
     Route: 047
  3. PHOSPHOLINE IODIDE [Concomitant]
     Active Substance: ECHOTHIOPHATE IODIDE
     Indication: PRODUCT USED FOR UNKNOWN INDICATION
     Dosage: 1 DF, BID
     Route: 047

REACTIONS (4)
  - Glaucoma [Unknown]
  - Medication residue present [Recovered/Resolved with Sequelae]
  - No adverse event [Unknown]
  - Intraocular pressure increased [Recovered/Resolved]
